FAERS Safety Report 14620070 (Version 6)
Quarter: 2018Q3

REPORT INFORMATION
  Report Type: Spontaneous
  Country: CA (occurrence: CA)
  Receive Date: 20180309
  Receipt Date: 20180921
  Transmission Date: 20181010
  Serious: Yes (Hospitalization, Other)
  Sender: FDA-Public Use
  Company Number: CA-CELLTRION INC.-2018CA018409

PATIENT

DRUGS (31)
  1. EFFEXOR XR [Concomitant]
     Active Substance: VENLAFAXINE HYDROCHLORIDE
  2. TRAZODONE                          /00447702/ [Concomitant]
     Active Substance: TRAZODONE HYDROCHLORIDE
     Indication: INSOMNIA
     Dosage: 50MG ONCE DAILY
  3. BISACODYL. [Concomitant]
     Active Substance: BISACODYL
     Indication: BOWEL MOVEMENT IRREGULARITY
     Dosage: 10MG ONCE DAILY
  4. TYLENOL WITH CODEINE [Concomitant]
     Active Substance: ACETAMINOPHEN\CODEINE PHOSPHATE
  5. PREDNISONE. [Concomitant]
     Active Substance: PREDNISONE
     Dosage: 35MG OD (1X/DAY), TAPER 5 PG PER
  6. LEVOTHYROXINE                      /00068002/ [Concomitant]
     Active Substance: LEVOTHYROXINE
     Dosage: 175MCG ORALLY ONCE DAILY
     Route: 048
  7. SCOPOLAMINE                        /00008701/ [Concomitant]
     Active Substance: SCOPOLAMINE
     Indication: NAUSEA
     Dosage: 1.5MG ONCE EVERY 3 DAYS, PATCH
  8. ZINCOFAX [Concomitant]
     Active Substance: ZINC OXIDE
     Dosage: 15% OINTMENTS AS NEEDED
  9. LORAZEPAM. [Concomitant]
     Active Substance: LORAZEPAM
     Dosage: 1?2MG TWICE DAILY AS NEEDED
  10. INFLIXIMAB PFIZER (UNKNOWN) [Suspect]
     Active Substance: INFLIXIMAB
     Dosage: 10 MG/KG /Q 0,2,6 WEEKS,THEN EVERY 8 WEEKS;
     Route: 042
     Dates: start: 20180518
  11. SALOFALK                           /00000301/ [Concomitant]
     Active Substance: MESALAMINE
     Dosage: 1G 3 TIMES DAILY,
  12. GRAVOL [Concomitant]
     Active Substance: DIMENHYDRINATE
     Dosage: 50MG EVERY 6 HOURS AS NEEDED (HOLD WHEN SCOPOLOMINE PATCH IS APPLIED)
     Route: 048
  13. VITAMIN B12 [Concomitant]
     Active Substance: CYANOCOBALAMIN
     Dosage: 1000MCG WEEKLY
     Route: 030
  14. CALCIUM CARBONATE. [Concomitant]
     Active Substance: CALCIUM CARBONATE
     Dosage: UNK
  15. FERROUS GLUCONATE [Concomitant]
     Active Substance: FERROUS GLUCONATE
     Dosage: UNK
  16. INFLIXIMAB PFIZER (UNKNOWN) [Suspect]
     Active Substance: INFLIXIMAB
     Dosage: 450 MG, UNK
     Route: 042
     Dates: start: 20180713
  17. INFLIXIMAB PFIZER (UNKNOWN) [Suspect]
     Active Substance: INFLIXIMAB
     Dosage: 10 MG/KG /Q 0,2,6 WEEKS, THEN EVERY 8 WEEKS;
     Route: 042
     Dates: start: 20180907
  18. MIRTAZAPINE. [Concomitant]
     Active Substance: MIRTAZAPINE
     Dosage: 15MG 3 TABS ONCE DAILY,
  19. VITAMIN D3 [Concomitant]
     Active Substance: CHOLECALCIFEROL
     Dosage: 1000MCG WEEKLY
     Route: 030
  20. URISEC [Concomitant]
     Dosage: TWICE DAILY AS NEEDED
  21. INFLIXIMAB PFIZER (UNKNOWN) [Suspect]
     Active Substance: INFLIXIMAB
     Indication: CROHN^S DISEASE
     Dosage: 440 MG/Q 0,2,6 WEEKS,THEN EVERY 8 WEEKS;
     Route: 042
     Dates: start: 20180212
  22. INFLIXIMAB PFIZER (UNKNOWN) [Suspect]
     Active Substance: INFLIXIMAB
     Dosage: 10 MG/KG /Q 0,2,6 WEEKS,THEN EVERY 8 WEEKS;
     Route: 042
     Dates: start: 20180212
  23. PENTASA [Concomitant]
     Active Substance: MESALAMINE
     Dosage: 500MG, PO (ORAL ROUTE)
     Route: 048
  24. QUETIAPINE. [Concomitant]
     Active Substance: QUETIAPINE
     Dosage: 300MG SR ALONG WITH 50MG 2 TABS SR IN EVENING, 25?50MG TWICE DAILY AS NEEDED
  25. AMITRIPTYLINE [Concomitant]
     Active Substance: AMITRIPTYLINE
     Dosage: 10MG AT BEDTIME
     Route: 048
     Dates: start: 20171130
  26. CLONAZEPAM. [Concomitant]
     Active Substance: CLONAZEPAM
     Dosage: UNK
  27. ACETAMINOPHEN AND CODEINE [Concomitant]
     Active Substance: ACETAMINOPHEN\CODEINE PHOSPHATE
     Dosage: 325?15MG EVERY 6?8HOURS AS NEEDED,
     Route: 048
  28. LOPERAMIDE [Concomitant]
     Active Substance: LOPERAMIDE
     Dosage: 2?5MG AFTER LOOSE BM (BOWEL MOVEMENT) AS NEEDED
  29. COBALAMIN [Concomitant]
     Active Substance: COBALAMIN
     Dosage: UNK
  30. INFLIXIMAB PFIZER (UNKNOWN) [Suspect]
     Active Substance: INFLIXIMAB
     Dosage: 440 MG/Q 0,2,6 WEEKS,THEN EVERY 8 WEEKS;
     Route: 042
     Dates: start: 20180212
  31. OMEPRAZOLE. [Concomitant]
     Active Substance: OMEPRAZOLE
     Dosage: 20MG ONCE DAILY
     Route: 048

REACTIONS (14)
  - Abdominal distension [Unknown]
  - Heart rate irregular [Unknown]
  - Respiratory distress [Unknown]
  - Diarrhoea [Unknown]
  - Small intestinal obstruction [Unknown]
  - Asthenia [Unknown]
  - Hypertension [Unknown]
  - Incorrect dose administered [Unknown]
  - Treatment failure [Unknown]
  - Blood albumin decreased [Not Recovered/Not Resolved]
  - Blood pressure fluctuation [Unknown]
  - Weight decreased [Unknown]
  - Hypokalaemia [Unknown]
  - Diet refusal [Recovering/Resolving]

NARRATIVE: CASE EVENT DATE: 20180518
